FAERS Safety Report 14698543 (Version 1)
Quarter: 2018Q1

REPORT INFORMATION
  Report Type: Spontaneous
  Country: US (occurrence: US)
  Receive Date: 20180330
  Receipt Date: 20180330
  Transmission Date: 20180509
  Serious: No
  Sender: FDA-Public Use
  Company Number: US-JNJFOC-20180311741

PATIENT
  Age: 80 Year
  Sex: Female
  Weight: 92.08 kg

DRUGS (5)
  1. SIMVASTATIN. [Concomitant]
     Active Substance: SIMVASTATIN
     Indication: BLOOD CHOLESTEROL INCREASED
     Route: 065
  2. ATENOLOL. [Concomitant]
     Active Substance: ATENOLOL
     Indication: HEART RATE
     Route: 065
  3. MAXIDENE [Concomitant]
     Active Substance: PIROXICAM
     Indication: HYPERTENSION
     Route: 065
  4. LEXAPRO [Concomitant]
     Active Substance: ESCITALOPRAM OXALATE
     Indication: DEPRESSION
     Route: 065
  5. TYLENOL REGULAR STRENGTH [Suspect]
     Active Substance: ACETAMINOPHEN
     Indication: ARTHRITIS
     Route: 065
     Dates: end: 20180306

REACTIONS (4)
  - Incorrect dose administered [Unknown]
  - Nightmare [Recovered/Resolved]
  - Hypersomnia [Recovered/Resolved]
  - Hallucination [Recovered/Resolved]
